FAERS Safety Report 14994769 (Version 3)
Quarter: 2018Q3

REPORT INFORMATION
  Report Type: Spontaneous
  Country: US (occurrence: US)
  Receive Date: 20180611
  Receipt Date: 20180817
  Transmission Date: 20181010
  Serious: No
  Sender: FDA-Public Use
  Company Number: US-PFIZER INC-2018233958

PATIENT
  Sex: Female

DRUGS (3)
  1. NEOMYCIN SULFATE. [Suspect]
     Active Substance: NEOMYCIN SULFATE
     Dosage: UNK
  2. BACITRACIN. [Suspect]
     Active Substance: BACITRACIN
     Dosage: UNK
  3. POLYMYXIN B. [Suspect]
     Active Substance: POLYMYXIN B
     Dosage: UNK

REACTIONS (2)
  - Rash [Unknown]
  - Drug hypersensitivity [Unknown]
